FAERS Safety Report 5603730-9 (Version None)
Quarter: 2008Q1

REPORT INFORMATION
  Report Type: 
  Country: None (occurrence: None)
  Receive Date: 20080128
  Receipt Date: 20080111
  Transmission Date: 20080703
  Serious: Yes (Death)
  Sender: FDA-Public Use
  Company Number: US-BAYER-200810944GPV

PATIENT
  Age: 43 Year
  Sex: Female

DRUGS (11)
  1. ALBUTEROL [Suspect]
  2. FUROSEMIDE [Suspect]
  3. NAPROXEN [Suspect]
  4. GABAPENTIN [Suspect]
  5. QUETIAPINE [Suspect]
  6. BETA BLOCKER [Suspect]
  7. BUPROPION HCL [Suspect]
  8. FLUOXETINE [Suspect]
  9. SPIRONOLACTONE [Suspect]
  10. THYROID PREPARATION [Suspect]
  11. COCAINE [Suspect]

REACTIONS (1)
  - DRUG TOXICITY [None]
